FAERS Safety Report 14901036 (Version 2)
Quarter: 2018Q2

REPORT INFORMATION
  Report Type: Report from Study
  Country: CA (occurrence: CA)
  Receive Date: 20180516
  Receipt Date: 20180522
  Transmission Date: 20180711
  Serious: No
  Sender: FDA-Public Use
  Company Number: CA-ROCHE-2035843

PATIENT
  Age: 69 Year
  Sex: Female

DRUGS (2)
  1. OCREVUS [Suspect]
     Active Substance: OCRELIZUMAB
     Indication: PRIMARY PROGRESSIVE MULTIPLE SCLEROSIS
     Dosage: 300 MG X 2 DOSES (2 WEEKS APART) FOR LOADING DOSE, AND THEN Q 6 MONTHS 600 MG IV
     Route: 042
     Dates: start: 20171129
  2. OCREVUS [Suspect]
     Active Substance: OCRELIZUMAB
     Dosage: 16/MAY/2018
     Route: 042
     Dates: start: 20171213

REACTIONS (7)
  - Pyrexia [Unknown]
  - Feeling hot [Unknown]
  - Infusion related reaction [Unknown]
  - Lower respiratory tract infection [Recovered/Resolved]
  - Pharyngeal oedema [Recovered/Resolved]
  - Erythema [Unknown]
  - Fatigue [Unknown]

NARRATIVE: CASE EVENT DATE: 20171129
